FAERS Safety Report 9836959 (Version 1)
Quarter: 2013Q4

REPORT INFORMATION
  Report Type: Spontaneous
  Country: US (occurrence: None)
  Receive Date: 20131120
  Receipt Date: 20131120
  Transmission Date: 20140711
  Serious: No
  Sender: FDA-Public Use
  Company Number: 1000048943

PATIENT
  Age: 47 Year
  Sex: Female

DRUGS (5)
  1. VIIBRYD (VILAZODONE HYDROCHLORIDE) (TABLETS) [Suspect]
     Indication: DEPRESSION
     Dates: start: 20130910, end: 20130915
  2. VIIBRYD (VILAZODONE HYDROCHLORIDE) (TABLETS) [Suspect]
     Indication: ANXIETY
     Dates: start: 20130910, end: 20130915
  3. VIIBRYD (VILAZODONE HYDROCHLORIDE) (TABLETS) [Suspect]
     Indication: OBSESSIVE-COMPULSIVE DISORDER
     Dates: start: 20130910, end: 20130915
  4. XANAX (ALPRAZOLAM) [Concomitant]
  5. MOBIC (MELOXICAM) [Concomitant]

REACTIONS (4)
  - Oedema peripheral [None]
  - Headache [None]
  - Diarrhoea [None]
  - Tinnitus [None]
